FAERS Safety Report 16726930 (Version 3)
Quarter: 2020Q3

REPORT INFORMATION
  Report Type: Spontaneous
  Country: US (occurrence: US)
  Receive Date: 20190821
  Receipt Date: 20191107
  Transmission Date: 20201104
  Serious: Yes (Hospitalization)
  Sender: FDA-Public Use
  Company Number: US-CELGENEUS-USA-20190806775

PATIENT
  Age: 62 Year
  Sex: Male
  Weight: 73.4 kg

DRUGS (37)
  1. ABRAXANE [Suspect]
     Active Substance: PACLITAXEL
     Dosage: 125 MILLIGRAM/SQ. METER
     Route: 041
     Dates: start: 20190103, end: 20190103
  2. ABRAXANE [Suspect]
     Active Substance: PACLITAXEL
     Dosage: 100 MILLIGRAM/SQ. METER
     Route: 041
     Dates: start: 20190325, end: 20190325
  3. OLECLUMAB. [Suspect]
     Active Substance: OLECLUMAB
     Indication: DUCTAL ADENOCARCINOMA OF PANCREAS
     Dosage: 3000 MILLIGRAM
     Route: 042
     Dates: start: 20181227, end: 20181227
  4. MEDI4736 (DURVALUMAB) [Suspect]
     Active Substance: DURVALUMAB
     Dosage: 1500 MILLIGRAM
     Route: 042
     Dates: start: 20190325, end: 20190325
  5. GEMCITABINE. [Suspect]
     Active Substance: GEMCITABINE
     Dosage: 750 MILLIGRAM/SQ. METER
     Route: 041
     Dates: start: 20190131, end: 20190131
  6. ABRAXANE [Suspect]
     Active Substance: PACLITAXEL
     Dosage: 100 MILLIGRAM/SQ. METER
     Route: 041
     Dates: start: 20190124, end: 20190124
  7. ABRAXANE [Suspect]
     Active Substance: PACLITAXEL
     Dosage: 100 MILLIGRAM/SQ. METER
     Route: 041
     Dates: start: 20190131, end: 20190131
  8. OLECLUMAB. [Suspect]
     Active Substance: OLECLUMAB
     Dosage: 3000 MILLIGRAM
     Route: 042
     Dates: start: 20190701, end: 20190701
  9. ABRAXANE [Suspect]
     Active Substance: PACLITAXEL
     Dosage: 100 MILLIGRAM/SQ. METER
     Route: 041
     Dates: start: 20190228, end: 20190228
  10. MEDI4736 (DURVALUMAB) [Suspect]
     Active Substance: DURVALUMAB
     Indication: DUCTAL ADENOCARCINOMA OF PANCREAS
     Dosage: 1500 MILLIGRAM
     Route: 042
     Dates: start: 20181227, end: 20181227
  11. GEMCITABINE. [Suspect]
     Active Substance: GEMCITABINE
     Dosage: 1000 MILLIGRAM/SQ. METER
     Route: 041
     Dates: start: 20180103, end: 20190103
  12. OLECLUMAB. [Suspect]
     Active Substance: OLECLUMAB
     Dosage: 3000 MILLIGRAM
     Route: 042
     Dates: start: 20190808, end: 20190808
  13. MEDI4736 (DURVALUMAB) [Suspect]
     Active Substance: DURVALUMAB
     Dosage: 1500 MILLIGRAM
     Route: 042
     Dates: start: 20190124, end: 20190124
  14. MEDI4736 (DURVALUMAB) [Suspect]
     Active Substance: DURVALUMAB
     Dosage: 1500 MILLIGRAM
     Route: 042
     Dates: start: 20190424, end: 20190424
  15. GEMCITABINE. [Suspect]
     Active Substance: GEMCITABINE
     Dosage: 750 MILLIGRAM/SQ. METER
     Route: 041
     Dates: start: 20190325, end: 20190325
  16. GEMCITABINE. [Suspect]
     Active Substance: GEMCITABINE
     Dosage: 750 MILLIGRAM/SQ. METER
     Route: 041
     Dates: start: 20190408, end: 20190408
  17. GEMCITABINE. [Suspect]
     Active Substance: GEMCITABINE
     Dosage: 750 MILLIGRAM/SQ. METER
     Route: 041
     Dates: start: 20190424, end: 20190424
  18. ABRAXANE [Suspect]
     Active Substance: PACLITAXEL
     Dosage: 100 MILLIGRAM/SQ. METER
     Route: 041
     Dates: start: 20190424, end: 20190424
  19. ABRAXANE [Suspect]
     Active Substance: PACLITAXEL
     Dosage: 100 MILLIGRAM/SQ. METER
     Route: 041
     Dates: start: 20190506, end: 20190506
  20. OLECLUMAB. [Suspect]
     Active Substance: OLECLUMAB
     Dosage: 3000 MILLIGRAM
     Route: 042
     Dates: start: 20190221, end: 20190221
  21. MEDI4736 (DURVALUMAB) [Suspect]
     Active Substance: DURVALUMAB
     Dosage: 1500 MILLIGRAM
     Route: 042
     Dates: start: 20190826, end: 20190826
  22. GEMCITABINE. [Suspect]
     Active Substance: GEMCITABINE
     Indication: DUCTAL ADENOCARCINOMA OF PANCREAS
     Dosage: 1000 MILLIGRAM/SQ. METER
     Route: 041
     Dates: start: 20181227, end: 20181227
  23. GEMCITABINE. [Suspect]
     Active Substance: GEMCITABINE
     Dosage: 1305 MILLIGRAM/SQ. METER
     Route: 041
     Dates: start: 20190701, end: 20190701
  24. ABRAXANE [Suspect]
     Active Substance: PACLITAXEL
     Indication: DUCTAL ADENOCARCINOMA OF PANCREAS
     Dosage: 125 MILLIGRAM/SQ. METER
     Route: 041
     Dates: start: 20181227, end: 20181227
  25. ABRAXANE [Suspect]
     Active Substance: PACLITAXEL
     Dosage: 100 MILLIGRAM/SQ. METER
     Route: 041
     Dates: start: 20190221, end: 20190221
  26. ABRAXANE [Suspect]
     Active Substance: PACLITAXEL
     Dosage: 100 MILLIGRAM/SQ. METER
     Route: 041
     Dates: start: 20190408, end: 20190408
  27. MEDI4736 (DURVALUMAB) [Suspect]
     Active Substance: DURVALUMAB
     Dosage: 1500 MILLIGRAM
     Route: 042
     Dates: start: 20190701, end: 20190701
  28. GEMCITABINE. [Suspect]
     Active Substance: GEMCITABINE
     Dosage: 750 MILLIGRAM/SQ. METER
     Route: 041
     Dates: start: 20190124, end: 20190124
  29. GEMCITABINE. [Suspect]
     Active Substance: GEMCITABINE
     Dosage: 750 MILLIGRAM/SQ. METER
     Route: 041
     Dates: start: 20190228, end: 20190228
  30. OLECLUMAB. [Suspect]
     Active Substance: OLECLUMAB
     Dosage: 3000 MILLIGRAM
     Route: 042
     Dates: start: 20190124, end: 20190124
  31. OLECLUMAB. [Suspect]
     Active Substance: OLECLUMAB
     Dosage: 3000 MILLIGRAM
     Route: 042
     Dates: start: 20190424, end: 20190424
  32. GEMCITABINE. [Suspect]
     Active Substance: GEMCITABINE
     Dosage: 750 MILLIGRAM/SQ. METER
     Route: 041
     Dates: start: 20190221, end: 20190221
  33. GEMCITABINE. [Suspect]
     Active Substance: GEMCITABINE
     Dosage: 1305 MILLIGRAM/SQ. METER
     Route: 041
     Dates: start: 20190715, end: 20190715
  34. OLECLUMAB. [Suspect]
     Active Substance: OLECLUMAB
     Dosage: 3000 MILLIGRAM
     Route: 042
     Dates: start: 20190325, end: 20190325
  35. OLECLUMAB. [Suspect]
     Active Substance: OLECLUMAB
     Dosage: 3000 MILLIGRAM
     Route: 042
     Dates: start: 20190826, end: 20190826
  36. MEDI4736 (DURVALUMAB) [Suspect]
     Active Substance: DURVALUMAB
     Dosage: 1500 MILLIGRAM
     Route: 042
     Dates: start: 20190221, end: 20190221
  37. GEMCITABINE. [Suspect]
     Active Substance: GEMCITABINE
     Dosage: 750 MILLIGRAM/SQ. METER
     Route: 041
     Dates: start: 20190506, end: 20190506

REACTIONS (1)
  - Pulmonary embolism [Recovered/Resolved]

NARRATIVE: CASE EVENT DATE: 20190805
